FAERS Safety Report 6169960-5 (Version None)
Quarter: 2009Q2

REPORT INFORMATION
  Report Type: 
  Country: None (occurrence: None)
  Receive Date: 20090424
  Receipt Date: 20090413
  Transmission Date: 20091009
  Serious: Yes (Hospitalization)
  Sender: FDA-Public Use
  Company Number: 192437USA

PATIENT
  Age: 80 Year
  Sex: Female

DRUGS (3)
  1. BISOPROLOL FUMARATE [Suspect]
     Indication: EXTRASYSTOLES
     Dosage: 5 MG (1 IN 1 D), ORAL
     Route: 048
     Dates: start: 20090405, end: 20090408
  2. DIOVAN [Concomitant]
  3. ADALAT CC [Concomitant]

REACTIONS (3)
  - ATRIOVENTRICULAR BLOCK COMPLETE [None]
  - CARDIAC FAILURE [None]
  - URINE OUTPUT DECREASED [None]
